FAERS Safety Report 4319305-8 (Version None)
Quarter: 2004Q1

REPORT INFORMATION
  Report Type: 
  Country: None (occurrence: None)
  Receive Date: 20040316
  Receipt Date: 20040302
  Transmission Date: 20041129
  Serious: Yes (Other)
  Sender: FDA-Public Use
  Company Number: SE-JNJFOC-20031002906

PATIENT
  Age: 61 Year
  Sex: Female

DRUGS (5)
  1. REMICADE [Suspect]
     Indication: RHEUMATOID ARTHRITIS
     Dosage: 3 MG/KG, 1 IN 8 WEEK, INTRAVENOUS
     Route: 042
     Dates: start: 20001016
  2. METROTREXATE (METHOTREXATE) TABLETS [Suspect]
     Indication: RHEUMATOID ARTHRITIS
     Dosage: 7.5 MG, 1 IN 1 WEEK, ORAL
     Route: 048
     Dates: start: 19900101, end: 20030811
  3. CALCICHEW (CALCIUM CARBONATE) [Concomitant]
  4. FEMANEST (ESTRADIOL) [Concomitant]
  5. FOLACIN (FOLACIN) [Concomitant]

REACTIONS (1)
  - TUBERCULOSIS [None]
